FAERS Safety Report 4365199-4 (Version None)
Quarter: 2004Q2

REPORT INFORMATION
  Report Type: 
  Country: None (occurrence: None)
  Receive Date: 20040525
  Receipt Date: 20040310
  Transmission Date: 20050107
  Serious: No
  Sender: FDA-Public Use
  Company Number: PHEH2004US02923

PATIENT
  Sex: Female

DRUGS (2)
  1. ZELNORM [Suspect]
     Indication: ABDOMINAL DISTENSION
     Dosage: 2 MG, BID
     Route: 048
     Dates: end: 20040310
  2. MILK OF MAGNESIA TAB [Concomitant]

REACTIONS (3)
  - ABDOMINAL DISTENSION [None]
  - ALOPECIA [None]
  - DRUG INEFFECTIVE [None]
